FAERS Safety Report 9353231 (Version 2)
Quarter: 2013Q2

REPORT INFORMATION
  Report Type: Spontaneous
  Country: US (occurrence: None)
  Receive Date: 20130612
  Receipt Date: 20130626
  Transmission Date: 20140414
  Serious: Yes (Other)
  Sender: FDA-Public Use
  Company Number: JPI-P-032688

PATIENT
  Age: 63 Year
  Sex: Male

DRUGS (1)
  1. XYREM (500 MILLIGRAM/MILLILITERS, SOLUTION) (SODIUM OXYBATE) [Suspect]
     Indication: SLEEP DISORDER
     Dosage: (4 GM 1ST/ 2 GM 2ND DOSE), ORAL
     Route: 048
     Dates: start: 20050408

REACTIONS (1)
  - Parkinson^s disease [None]
